FAERS Safety Report 4327132-0 (Version None)
Quarter: 2004Q1

REPORT INFORMATION
  Report Type: 
  Country: None (occurrence: None)
  Receive Date: 20040330
  Receipt Date: 20040227
  Transmission Date: 20041129
  Serious: Yes (Other)
  Sender: FDA-Public Use
  Company Number: US-GLAXOSMITHKLINE-A0500405A

PATIENT
  Age: 31 Year
  Sex: Female
  Weight: 58.6 kg

DRUGS (2)
  1. PAXIL CR [Suspect]
     Indication: DRUG USE FOR UNKNOWN INDICATION
     Dosage: 25MG PER DAY
     Route: 048
     Dates: start: 20030915, end: 20031231
  2. CYCLESSA [Concomitant]
     Indication: CONTRACEPTION
     Dosage: 1TAB PER DAY
     Route: 048

REACTIONS (4)
  - GINGIVAL BLEEDING [None]
  - INCREASED TENDENCY TO BRUISE [None]
  - METRORRHAGIA [None]
  - PLATELET AGGREGATION [None]
